FAERS Safety Report 5764547-8 (Version None)
Quarter: 2008Q2

REPORT INFORMATION
  Report Type: 
  Country: None (occurrence: None)
  Receive Date: 20080605
  Receipt Date: 20080521
  Transmission Date: 20081010
  Serious: Yes (Hospitalization)
  Sender: FDA-Public Use
  Company Number: 233268J08USA

PATIENT
  Age: 48 Year
  Sex: Male

DRUGS (4)
  1. REBIF [Suspect]
     Indication: MULTIPLE SCLEROSIS
     Dosage: 22 MCG, 3 IN 1 WEEKS, SUBCUTANEOUS; 8.8 MCG, SUBCUTANEOUS
     Route: 058
     Dates: start: 20080314, end: 20080402
  2. REBIF [Suspect]
     Indication: MULTIPLE SCLEROSIS
     Dosage: 22 MCG, 3 IN 1 WEEKS, SUBCUTANEOUS; 8.8 MCG, SUBCUTANEOUS
     Route: 058
     Dates: start: 20080402, end: 20080402
  3. VERAPAMIL (VERAPAMIL /00014301/) [Concomitant]
  4. UNSPECIFIED MEDICATION (ANTIHYPERTENSIVES) [Concomitant]

REACTIONS (8)
  - BLOOD PRESSURE INCREASED [None]
  - CELLULITIS [None]
  - DYSPNOEA [None]
  - INFLUENZA LIKE ILLNESS [None]
  - MUSCULOSKELETAL STIFFNESS [None]
  - NAUSEA [None]
  - RASH ERYTHEMATOUS [None]
  - VERTIGO [None]
